FAERS Safety Report 8934006 (Version 1)
Quarter: 2012Q4

REPORT INFORMATION
  Report Type: 
  Country: IN (occurrence: IN)
  Receive Date: 20121129
  Receipt Date: 20121129
  Transmission Date: 20130627
  Serious: Yes (Death)
  Sender: FDA-Public Use
  Company Number: IN-PFIZER INC-2012296658

PATIENT
  Age: 66 Year
  Sex: Female

DRUGS (1)
  1. SUTENT [Suspect]
     Indication: GASTROINTESTINAL STROMAL TUMOR
     Dosage: 50 mg, 1x/day
     Route: 048
     Dates: start: 20120721

REACTIONS (3)
  - Myocardial infarction [Fatal]
  - Disease progression [Fatal]
  - Gastrointestinal stromal tumour [Fatal]
